FAERS Safety Report 4835525-8 (Version None)
Quarter: 2005Q4

REPORT INFORMATION
  Report Type: 
  Country: None (occurrence: None)
  Receive Date: 20051123
  Receipt Date: 20051116
  Transmission Date: 20060501
  Serious: Yes (Hospitalization)
  Sender: FDA-Public Use
  Company Number: US-ABBOTT-05P-163-0317409-00

PATIENT
  Sex: Female
  Weight: 65.83 kg

DRUGS (9)
  1. HUMIRA [Suspect]
     Indication: RHEUMATOID ARTHRITIS
     Route: 058
     Dates: start: 20050111, end: 20050401
  2. HUMIRA [Suspect]
     Route: 058
     Dates: start: 20050401, end: 20051021
  3. HUMIRA [Suspect]
     Route: 058
     Dates: start: 20051110
  4. FOLIC ACID [Concomitant]
     Indication: VITAMIN SUPPLEMENTATION
     Route: 048
  5. METHOTREXATE [Concomitant]
     Indication: RHEUMATOID ARTHRITIS
     Route: 048
  6. OMEPRAZOLE [Concomitant]
     Indication: STOMACH DISCOMFORT
     Route: 048
  7. IBUPROFEN [Concomitant]
     Indication: RHEUMATOID ARTHRITIS
     Route: 048
  8. MULTI-VITAMINS [Concomitant]
     Indication: VITAMIN SUPPLEMENTATION
     Route: 048
  9. ACETAMINOPHEN W/ CODEINE [Concomitant]
     Indication: PROCEDURAL PAIN
     Route: 048
     Dates: start: 20051107, end: 20051115

REACTIONS (1)
  - CERVICAL DYSPLASIA [None]
